FAERS Safety Report 24434404 (Version 1)
Quarter: 2024Q4

REPORT INFORMATION
  Report Type: Spontaneous
  Country: US (occurrence: US)
  Receive Date: 20241014
  Receipt Date: 20241014
  Transmission Date: 20250115
  Serious: No
  Sender: PFIZER
  Company Number: US-PFIZER INC-202400274132

PATIENT
  Age: 66 Year
  Sex: Female

DRUGS (1)
  1. TUKYSA [Suspect]
     Active Substance: TUCATINIB
     Indication: Breast cancer female
     Dosage: 150 MG TAKE TWO TABLETS BY MOUTH EVERY 12 HOURS
     Route: 048
     Dates: end: 20240305

REACTIONS (1)
  - Blood test abnormal [Unknown]
